FAERS Safety Report 9839566 (Version 2)
Quarter: 2020Q3

REPORT INFORMATION
  Report Type: Report from Study
  Country: US (occurrence: US)
  Receive Date: 20140124
  Receipt Date: 20140131
  Transmission Date: 20201105
  Serious: Yes (Life-Threatening)
  Sender: FDA-Public Use
  Company Number: US-ROCHE-1336089

PATIENT
  Age: 70 Year
  Sex: Male
  Weight: 109.8 kg

DRUGS (12)
  1. POLATUZUMAB VEDOTIN. [Suspect]
     Active Substance: POLATUZUMAB VEDOTIN
     Indication: B-CELL LYMPHOMA
     Dosage: MOST RECENT DOSE PRIOR TO SAE:  06/MAR/2013
     Route: 041
     Dates: start: 20120427, end: 20130515
  2. RITUXIMAB. [Suspect]
     Active Substance: RITUXIMAB
     Indication: B-CELL LYMPHOMA
     Dosage: MOST RECENT DOSE PRIOR TO SAE:  06/MAR/2013
     Route: 041
     Dates: start: 20120425
  3. FILGRASTIM [Concomitant]
     Active Substance: FILGRASTIM
     Indication: PROPHYLAXIS
     Route: 058
     Dates: start: 20120517
  4. PEGFILGRASTIM [Concomitant]
     Active Substance: PEGFILGRASTIM
     Indication: PROPHYLAXIS
     Route: 058
     Dates: start: 20120427
  5. BENDAMUSTINE [Concomitant]
     Active Substance: BENDAMUSTINE
  6. BETAMETHASONE. [Concomitant]
     Active Substance: BETAMETHASONE
     Indication: RASH MACULO-PAPULAR
     Route: 061
     Dates: start: 20130224
  7. CLARITIN [Concomitant]
     Active Substance: LORATADINE
     Indication: PROPHYLAXIS
     Route: 048
     Dates: start: 20120706
  8. DEXAMETHASONE. [Concomitant]
     Active Substance: DEXAMETHASONE
     Indication: MUCOSAL INFLAMMATION
     Route: 061
     Dates: start: 20130410
  9. ACETAMINOPHEN. [Concomitant]
     Active Substance: ACETAMINOPHEN
     Indication: MYALGIA
     Route: 048
     Dates: start: 20120621
  10. HYDROCORTISONE. [Concomitant]
     Active Substance: HYDROCORTISONE
     Indication: RASH MACULO-PAPULAR
     Route: 061
     Dates: start: 20130224
  11. ACETAMINOPHEN. [Concomitant]
     Active Substance: ACETAMINOPHEN
     Indication: BONE PAIN
     Route: 048
     Dates: start: 20120523
  12. ACETAMINOPHEN. [Concomitant]
     Active Substance: ACETAMINOPHEN
     Indication: PYREXIA

REACTIONS (1)
  - Myelodysplastic syndrome [Not Recovered/Not Resolved]

NARRATIVE: CASE EVENT DATE: 20131127
